FAERS Safety Report 25299161 (Version 2)
Quarter: 2025Q2

REPORT INFORMATION
  Report Type: Spontaneous
  Country: CN (occurrence: CN)
  Receive Date: 20250512
  Receipt Date: 20250522
  Transmission Date: 20250717
  Serious: Yes (Death, Life-Threatening, Hospitalization)
  Sender: TEVA
  Company Number: CN-TEVA-VS-3329573

PATIENT
  Age: 50 Year
  Sex: Female

DRUGS (2)
  1. PREDNISONE [Suspect]
     Active Substance: PREDNISONE
     Indication: Immune thrombocytopenia
     Route: 048
     Dates: start: 2021
  2. LEUCOGEN [Concomitant]
     Active Substance: LEUCOGEN
     Indication: Immune thrombocytopenia
     Route: 065

REACTIONS (4)
  - Nocardiosis [Recovered/Resolved]
  - Septic shock [Recovered/Resolved]
  - Systemic candida [Recovered/Resolved]
  - Drug ineffective [Fatal]

NARRATIVE: CASE EVENT DATE: 20220101
